FAERS Safety Report 12212164 (Version 2)
Quarter: 2016Q2

REPORT INFORMATION
  Report Type: Report from Study
  Country: US (occurrence: US)
  Receive Date: 20160325
  Receipt Date: 20160420
  Transmission Date: 20160815
  Serious: Yes (Death)
  Sender: FDA-Public Use
  Company Number: US-ACTELION-A-NJ2016-133238

PATIENT
  Age: 87 Year
  Sex: Male

DRUGS (1)
  1. MACITENTAN [Suspect]
     Active Substance: MACITENTAN
     Indication: PULMONARY HYPERTENSION
     Dosage: 10 MG, QD
     Route: 048
     Dates: start: 20151118

REACTIONS (1)
  - Death [Fatal]

NARRATIVE: CASE EVENT DATE: 20160301
